FAERS Safety Report 15966206 (Version 2)
Quarter: 2019Q1

REPORT INFORMATION
  Report Type: Report from Study
  Country: ZA (occurrence: ZA)
  Receive Date: 20190215
  Receipt Date: 20190226
  Transmission Date: 20190418
  Serious: Yes (Hospitalization)
  Sender: FDA-Public Use
  Company Number: ZA-TEVA-2019-ZA-1014261

PATIENT
  Sex: Female

DRUGS (9)
  1. TREPILINE [Concomitant]
     Active Substance: AMITRIPTYLINE
  2. URBANOL [Concomitant]
     Active Substance: CLOBAZAM
  3. PREXUM PLUS [Concomitant]
     Active Substance: PERINDOPRIL ERBUMINE
  4. COPAXONE [Suspect]
     Active Substance: GLATIRAMER ACETATE
     Indication: MULTIPLE SCLEROSIS
     Dosage: 20 MILLIGRAM/MILLILITERS DAILY;
     Route: 058
     Dates: start: 20161110
  5. SIMVASTATIN. [Concomitant]
     Active Substance: SIMVASTATIN
  6. ALPHA LIPOIC ACID [Concomitant]
     Active Substance: .ALPHA.-LIPOIC ACID
  7. CALCIFEROL [Concomitant]
  8. TRAMASET [Concomitant]
  9. ESCITALOPRAM [Concomitant]
     Active Substance: ESCITALOPRAM OXALATE

REACTIONS (3)
  - Headache [Not Recovered/Not Resolved]
  - Arthralgia [Not Recovered/Not Resolved]
  - Pain [Not Recovered/Not Resolved]
